FAERS Safety Report 5007376-5 (Version None)
Quarter: 2006Q2

REPORT INFORMATION
  Report Type: 
  Country: None (occurrence: None)
  Receive Date: 20060518
  Receipt Date: 20060518
  Transmission Date: 20061013
  Serious: Yes (Other)
  Sender: FDA-Public Use
  Company Number: None

PATIENT
  Age: 52 Year
  Sex: Male
  Weight: 75.7507 kg

DRUGS (1)
  1. AVELOX [Suspect]
     Indication: FURUNCLE
     Dosage: 400 MG 1 X DAY
     Dates: start: 20060411, end: 20060421

REACTIONS (11)
  - BURNING SENSATION [None]
  - HEADACHE [None]
  - INSOMNIA [None]
  - JOINT RANGE OF MOTION DECREASED [None]
  - MALAISE [None]
  - MEMORY IMPAIRMENT [None]
  - PANIC ATTACK [None]
  - PHANTOM PAIN [None]
  - RASH [None]
  - SHOULDER PAIN [None]
  - SINUS DISORDER [None]
